FAERS Safety Report 8315160-X (Version None)
Quarter: 2012Q2

REPORT INFORMATION
  Report Type: 
  Country: None (occurrence: None)
  Receive Date: 20120426
  Receipt Date: 20120416
  Transmission Date: 20120825
  Serious: Yes (Disabling)
  Sender: FDA-Public Use
  Company Number: US-GLAXOSMITHKLINE-A0975013A

PATIENT
  Age: 20 Year
  Sex: Female

DRUGS (3)
  1. EFFEXOR [Suspect]
     Indication: DEPRESSION
     Dosage: 1TAB PER DAY
     Route: 048
     Dates: start: 19970101, end: 19990101
  2. NO CONCURRENT MEDICATION [Concomitant]
  3. IMITREX [Suspect]
     Indication: MIGRAINE
     Dates: start: 19990101, end: 19990101

REACTIONS (5)
  - DRUG INTERACTION [None]
  - WITHDRAWAL SYNDROME [None]
  - UVEITIS [None]
  - MALAISE [None]
  - NAUSEA [None]
